FAERS Safety Report 23615733 (Version 11)
Quarter: 2025Q2

REPORT INFORMATION
  Report Type: Report from Study
  Country: US (occurrence: US)
  Receive Date: 20240311
  Receipt Date: 20250630
  Transmission Date: 20250717
  Serious: Yes (Hospitalization)
  Sender: TAKEDA
  Company Number: US-TAKEDA-2023TUS099073

PATIENT
  Sex: Female

DRUGS (7)
  1. ECALLANTIDE [Suspect]
     Active Substance: ECALLANTIDE
     Indication: Immune system disorder
  2. TAKHZYRO [Suspect]
     Active Substance: LANADELUMAB-FLYO
     Indication: Immune system disorder
     Dosage: 300 MILLIGRAM, Q2WEEKS
     Dates: start: 202401
  3. TAKHZYRO [Suspect]
     Active Substance: LANADELUMAB-FLYO
  4. TAKHZYRO [Suspect]
     Active Substance: LANADELUMAB-FLYO
  5. BERINERT [Suspect]
     Active Substance: HUMAN C1-ESTERASE INHIBITOR
     Indication: Product used for unknown indication
  6. RUCONEST [Concomitant]
     Active Substance: CONESTAT ALFA
  7. EPINEPHRINE [Concomitant]
     Active Substance: EPINEPHRINE

REACTIONS (7)
  - Hereditary angioedema [Recovered/Resolved]
  - Weight decreased [Unknown]
  - Weight increased [Unknown]
  - Hot flush [Unknown]
  - Product use issue [Unknown]
  - Insurance issue [Unknown]
  - Urinary tract infection [Unknown]
